FAERS Safety Report 5376671-2 (Version None)
Quarter: 2007Q2

REPORT INFORMATION
  Report Type: 
  Country: None (occurrence: None)
  Receive Date: 20070629
  Receipt Date: 20070618
  Transmission Date: 20071010
  Serious: Yes (Death)
  Sender: FDA-Public Use
  Company Number: 2007-02022

PATIENT
  Sex: Male

DRUGS (1)
  1. VELCADE [Suspect]
     Indication: LYMPHOMA

REACTIONS (2)
  - LYMPHOMA [None]
  - MALIGNANT NEOPLASM PROGRESSION [None]
